FAERS Safety Report 4570478-1 (Version None)
Quarter: 2005Q1

REPORT INFORMATION
  Report Type: 
  Country: None (occurrence: None)
  Receive Date: 20050204
  Receipt Date: 20041122
  Transmission Date: 20050727
  Serious: Yes (Hospitalization, Disabling, Other)
  Sender: FDA-Public Use
  Company Number: US-MERCK-0411USA03520

PATIENT
  Age: 66 Year
  Sex: Female

DRUGS (2)
  1. VIOXX [Suspect]
     Indication: OSTEOPOROSIS
     Route: 048
  2. BEXTRA [Concomitant]
     Route: 065

REACTIONS (38)
  - ABDOMINAL PAIN UPPER [None]
  - AMNESIA [None]
  - ANXIETY [None]
  - ARTHRALGIA [None]
  - ASTHENIA [None]
  - BACK PAIN [None]
  - BRONCHITIS [None]
  - CEREBROVASCULAR ACCIDENT [None]
  - CONSTIPATION [None]
  - COUGH [None]
  - DEPRESSION [None]
  - DIARRHOEA [None]
  - DYSPHAGIA [None]
  - EAR PAIN [None]
  - FALL [None]
  - FATIGUE [None]
  - HAEMATOCHEZIA [None]
  - HAEMORRHOIDS [None]
  - HEADACHE [None]
  - HOT FLUSH [None]
  - HYPERSENSITIVITY [None]
  - HYPERTENSION [None]
  - INSOMNIA [None]
  - IRRITABLE BOWEL SYNDROME [None]
  - MOUTH ULCERATION [None]
  - MUSCLE SPASMS [None]
  - MUSCLE STRAIN [None]
  - MYALGIA [None]
  - NASAL SINUS DRAINAGE [None]
  - NAUSEA [None]
  - NECK PAIN [None]
  - NEUROPATHY [None]
  - PANIC ATTACK [None]
  - PHARYNGITIS [None]
  - PHARYNGOLARYNGEAL PAIN [None]
  - RASH PUSTULAR [None]
  - SYSTEMIC LUPUS ERYTHEMATOSUS [None]
  - UPPER RESPIRATORY TRACT INFECTION [None]
